FAERS Safety Report 17808365 (Version 1)
Quarter: 2020Q2

REPORT INFORMATION
  Report Type: Report from Study
  Country: BR (occurrence: BR)
  Receive Date: 20200520
  Receipt Date: 20200520
  Transmission Date: 20200714
  Serious: Yes (Other)
  Sender: FDA-Public Use
  Company Number: NVSC2020BR070438

PATIENT
  Sex: Female

DRUGS (1)
  1. SANDOSTATIN LAR DEPOT [Suspect]
     Active Substance: OCTREOTIDE ACETATE
     Indication: ACROMEGALY
     Dosage: UNK
     Route: 065
     Dates: start: 2014

REACTIONS (11)
  - Arthralgia [Recovering/Resolving]
  - Memory impairment [Recovering/Resolving]
  - Weight decreased [Unknown]
  - Dysarthria [Recovering/Resolving]
  - Mouth swelling [Unknown]
  - Intracranial aneurysm [Unknown]
  - Lip swelling [Unknown]
  - Tooth disorder [Not Recovered/Not Resolved]
  - Pain [Recovering/Resolving]
  - Gait disturbance [Recovering/Resolving]
  - Pain in extremity [Recovering/Resolving]

NARRATIVE: CASE EVENT DATE: 2015
